FAERS Safety Report 16711605 (Version 3)
Quarter: 2019Q3

REPORT INFORMATION
  Report Type: Spontaneous
  Country: US (occurrence: US)
  Receive Date: 20190816
  Receipt Date: 20190903
  Transmission Date: 20191004
  Serious: No
  Sender: FDA-Public Use
  Company Number: US-SA-2019SA221295

PATIENT
  Age: 23 Year
  Sex: Male

DRUGS (1)
  1. LANTUS [Suspect]
     Active Substance: INSULIN GLARGINE
     Indication: TYPE 1 DIABETES MELLITUS
     Dosage: 6.5 TO 7 UNITS DAILY
     Route: 065

REACTIONS (2)
  - Blood glucose increased [Unknown]
  - Extra dose administered [Unknown]
